FAERS Safety Report 24627905 (Version 2)
Quarter: 2024Q4

REPORT INFORMATION
  Report Type: Spontaneous
  Country: US (occurrence: US)
  Receive Date: 20241117
  Receipt Date: 20241204
  Transmission Date: 20250114
  Serious: Yes (Hospitalization, Other)
  Sender: DR REDDYS
  Company Number: None

PATIENT
  Age: 63 Year
  Sex: Male

DRUGS (11)
  1. TACROLIMUS [Suspect]
     Active Substance: TACROLIMUS
     Indication: Immunosuppression
  2. TACROLIMUS [Suspect]
     Active Substance: TACROLIMUS
  3. CIPROFLOXACIN [Suspect]
     Active Substance: CIPROFLOXACIN
     Indication: Mycobacterium haemophilum infection
  4. AZITHROMYCIN [Suspect]
     Active Substance: AZITHROMYCIN
     Indication: Mycobacterium haemophilum infection
  5. RIFABUTIN [Suspect]
     Active Substance: RIFABUTIN
     Indication: Mycobacterium haemophilum infection
  6. CLOFAZIMINE [Suspect]
     Active Substance: CLOFAZIMINE
     Indication: Mycobacterium haemophilum infection
  7. CLOFAZIMINE [Suspect]
     Active Substance: CLOFAZIMINE
     Indication: Arthritis bacterial
  8. MYCOPHENOLATE MOFETIL [Suspect]
     Active Substance: MYCOPHENOLATE MOFETIL
     Indication: Prophylaxis
  9. PREDNISONE [Suspect]
     Active Substance: PREDNISONE
     Indication: Prophylaxis
  10. LINEZOLID [Concomitant]
     Active Substance: LINEZOLID
     Indication: Mycobacterium haemophilum infection
  11. LINEZOLID [Concomitant]
     Active Substance: LINEZOLID
     Indication: Arthritis bacterial

REACTIONS (16)
  - Mycobacterium haemophilum infection [Unknown]
  - Arthritis bacterial [Recovered/Resolved]
  - Thrombocytopenia [Unknown]
  - Empyema [Unknown]
  - Electrocardiogram QT prolonged [Recovering/Resolving]
  - Bone marrow failure [Unknown]
  - Anaemia [Unknown]
  - Asthenia [Unknown]
  - Leukocytosis [Unknown]
  - Pleural effusion [Unknown]
  - Atelectasis [Unknown]
  - Disease recurrence [Unknown]
  - Drug ineffective [Unknown]
  - Drug interaction [Unknown]
  - Product use in unapproved indication [Unknown]
  - Immunosuppressant drug level decreased [Unknown]
